FAERS Safety Report 19795728 (Version 1)
Quarter: 2021Q3

REPORT INFORMATION
  Report Type: Spontaneous
  Country: US (occurrence: US)
  Receive Date: 20210904
  Receipt Date: 20210904
  Transmission Date: 20211014
  Serious: Yes (Life-Threatening, Disabling)
  Sender: FDA-Public Use
  Company Number: None

PATIENT
  Age: 43 Year

DRUGS (1)
  1. CIPROFLOXACIN. [Suspect]
     Active Substance: CIPROFLOXACIN
     Indication: URINARY TRACT INFECTION
     Dosage: ?          QUANTITY:1 TABLET(S);?
     Route: 048
     Dates: start: 20210115, end: 20210120

REACTIONS (10)
  - Blood glucose abnormal [None]
  - Abdominal pain [None]
  - Tendon disorder [None]
  - Confusional state [None]
  - Shock [None]
  - Malaise [None]
  - Pain [None]
  - Ligament sprain [None]
  - Joint injury [None]
  - Feeling cold [None]

NARRATIVE: CASE EVENT DATE: 20210115
